FAERS Safety Report 6007497-4 (Version None)
Quarter: 2008Q4

REPORT INFORMATION
  Report Type: 
  Country: None (occurrence: None)
  Receive Date: 20081217
  Receipt Date: 20080429
  Transmission Date: 20090506
  Serious: No
  Sender: FDA-Public Use
  Company Number: US-ASTRAZENECA-2008UW08767

PATIENT
  Age: 77 Year
  Sex: Female

DRUGS (4)
  1. CRESTOR [Suspect]
     Indication: BLOOD CHOLESTEROL INCREASED
     Route: 048
  2. METOPROLOL TARTRATE [Concomitant]
  3. ACTONEL [Concomitant]
  4. GLAUCOMA DROPS [Concomitant]
     Route: 047

REACTIONS (1)
  - BLOOD PRESSURE INCREASED [None]
